FAERS Safety Report 24328685 (Version 2)
Quarter: 2024Q3

REPORT INFORMATION
  Report Type: Spontaneous
  Country: JP (occurrence: JP)
  Receive Date: 20240917
  Receipt Date: 20240925
  Transmission Date: 20241016
  Serious: Yes (Other)
  Sender: MALLINCKRODT
  Company Number: JP-MALLINCKRODT-MNK202405702

PATIENT
  Age: 71 Year
  Sex: Male

DRUGS (9)
  1. NITRIC OXIDE [Suspect]
     Active Substance: NITRIC OXIDE
     Indication: Pulmonary hypertension
     Dosage: 20 PPM
     Route: 055
  2. NITRIC OXIDE [Suspect]
     Active Substance: NITRIC OXIDE
     Dosage: 15 PPM
     Route: 055
  3. NITRIC OXIDE [Suspect]
     Active Substance: NITRIC OXIDE
     Dosage: 10 PPM
     Route: 055
  4. NITRIC OXIDE [Suspect]
     Active Substance: NITRIC OXIDE
     Dosage: 5 PPM
     Route: 055
  5. NITRIC OXIDE [Suspect]
     Active Substance: NITRIC OXIDE
     Dosage: 3 PPM
     Route: 055
  6. NITRIC OXIDE [Suspect]
     Active Substance: NITRIC OXIDE
     Dosage: 1 PPM
     Route: 055
  7. NITRIC OXIDE [Suspect]
     Active Substance: NITRIC OXIDE
     Dosage: 0.1 PPM
     Route: 055
  8. NITRIC OXIDE [Suspect]
     Active Substance: NITRIC OXIDE
     Dosage: 0.5 PPM
     Route: 055
  9. NITRIC OXIDE [Suspect]
     Active Substance: NITRIC OXIDE
     Dosage: 1 PPM
     Route: 055

REACTIONS (2)
  - Pulmonary hypertension [Unknown]
  - Oxygen saturation decreased [Recovered/Resolved]
